FAERS Safety Report 4755573-6 (Version None)
Quarter: 2005Q3

REPORT INFORMATION
  Report Type: 
  Country: None (occurrence: None)
  Receive Date: 20050830
  Receipt Date: 20050519
  Transmission Date: 20060218
  Serious: No
  Sender: FDA-Public Use
  Company Number: US-BRISTOL-MYERS SQUIBB COMPANY-12976247

PATIENT
  Age: 60 Year
  Sex: Female

DRUGS (2)
  1. ABILIFY [Suspect]
     Indication: HALLUCINATION
     Route: 048
  2. PROZAC [Concomitant]
     Route: 048

REACTIONS (1)
  - PARKINSONISM [None]
